FAERS Safety Report 24869589 (Version 1)
Quarter: 2025Q1

REPORT INFORMATION
  Report Type: Spontaneous
  Country: US (occurrence: None)
  Receive Date: 20250118
  Receipt Date: 20250118
  Transmission Date: 20250409
  Serious: Yes (Life-Threatening, Hospitalization, Disabling)
  Sender: FDA-CTU
  Company Number: None

PATIENT
  Age: 87 Year
  Sex: Female
  Weight: 74.25 kg

DRUGS (1)
  1. PAXLOVID [Suspect]
     Active Substance: NIRMATRELVIR\RITONAVIR
     Indication: COVID-19
     Dosage: 2 TABLETS TWICE A DAY
     Dates: start: 20241218, end: 20241222

REACTIONS (8)
  - Diarrhoea [None]
  - Nausea [None]
  - Peripheral swelling [None]
  - Blood sodium decreased [None]
  - Blood potassium increased [None]
  - Hypophagia [None]
  - Stomatitis [None]
  - Pericardial effusion [None]

NARRATIVE: CASE EVENT DATE: 20241222
